FAERS Safety Report 8487352-0 (Version None)
Quarter: 2012Q2

REPORT INFORMATION
  Report Type: 
  Country: None (occurrence: None)
  Receive Date: 20120628
  Receipt Date: 20120628
  Transmission Date: 20120825
  Serious: No
  Sender: FDA-Public Use
  Company Number: None

PATIENT
  Sex: Male
  Weight: 99.7913 kg

DRUGS (2)
  1. COUMADIN [Suspect]
     Indication: THROMBOSIS PROPHYLAXIS
     Dosage: 1 PILL 5 MG DAILY
     Dates: start: 20120401
  2. GOUT PILLS [Suspect]

REACTIONS (3)
  - WEIGHT BEARING DIFFICULTY [None]
  - SWELLING [None]
  - ARTHRALGIA [None]
